FAERS Safety Report 6436148-X (Version None)
Quarter: 2009Q4

REPORT INFORMATION
  Report Type: 
  Country: None (occurrence: None)
  Receive Date: 20091111
  Receipt Date: 20091030
  Transmission Date: 20100525
  Serious: Yes (Other)
  Sender: FDA-Public Use
  Company Number: JP-PFIZER INC-2009259900

PATIENT
  Age: 54 Year
  Sex: Female

DRUGS (13)
  1. MYCOBUTIN [Suspect]
     Indication: MYCOBACTERIAL INFECTION
     Dosage: UNK
     Route: 048
     Dates: start: 20090707, end: 20090718
  2. MYCOBUTIN [Suspect]
     Dosage: 300 MG/DAY
     Dates: start: 20090719, end: 20090901
  3. MYCOBUTIN [Suspect]
     Dosage: 225 MG/DAY
     Dates: start: 20090902, end: 20090927
  4. MYCOBUTIN [Suspect]
     Dosage: 300 MG/DAY
     Dates: start: 20090928
  5. AVELOX [Concomitant]
     Dosage: UNK
     Route: 048
     Dates: start: 20090729, end: 20090804
  6. EBUTOL [Concomitant]
     Dosage: 500 MG, 1X/DAY
     Route: 048
     Dates: start: 20080509
  7. LANSOPRAZOLE [Concomitant]
     Dosage: UNK
     Route: 048
     Dates: start: 20080811
  8. MUCOSTA [Concomitant]
     Dosage: UNK
     Route: 048
     Dates: start: 20090324
  9. MARZULENE S [Concomitant]
     Dosage: UNK
     Route: 048
     Dates: start: 20090723
  10. SPARA [Concomitant]
     Dosage: 100 MG/DAY
     Route: 048
     Dates: start: 20090324
  11. KLARICID [Concomitant]
     Dosage: 400 MG/DAY
     Route: 048
     Dates: start: 20081213, end: 20090928
  12. HOKUNALIN [Concomitant]
     Dosage: UNK
     Route: 062
     Dates: start: 20090811
  13. METHISTA [Concomitant]
     Dosage: UNK
     Route: 048
     Dates: start: 20080723

REACTIONS (2)
  - JOINT SWELLING [None]
  - WHITE BLOOD CELL COUNT DECREASED [None]
